FAERS Safety Report 4415293-4 (Version None)
Quarter: 2004Q3

REPORT INFORMATION
  Report Type: 
  Country: None (occurrence: None)
  Receive Date: 20040730
  Receipt Date: 20040719
  Transmission Date: 20050211
  Serious: Yes (Other)
  Sender: FDA-Public Use
  Company Number: 207923

PATIENT
  Age: 44 Year
  Sex: Male

DRUGS (6)
  1. MABTHERA (RITUXIMAB) CONC FOR SOLUTION FOR INFUSION [Suspect]
     Indication: NON-HODGKIN'S LYMPHOMA
     Dosage: 375 MG/M2, INTRAVENOUS
     Route: 042
  2. DOXORUBICIN HCL [Concomitant]
  3. CYCLOPHOSPHAMIDE [Concomitant]
  4. VINDESINE (VINDESINE) [Concomitant]
  5. BLEOMYCIN [Concomitant]
  6. STEM CELL TRANSPLANT (STEM CELLS) [Concomitant]

REACTIONS (2)
  - FEBRILE NEUTROPENIA [None]
  - INFECTION [None]
